FAERS Safety Report 5369740-4 (Version None)
Quarter: 2007Q2

REPORT INFORMATION
  Report Type: 
  Country: None (occurrence: None)
  Receive Date: 20070625
  Receipt Date: 20070618
  Transmission Date: 20071010
  Serious: Yes (Other)
  Sender: FDA-Public Use
  Company Number: IT-ROXANE LABORATORIES, INC-2007-BP-11267RO

PATIENT
  Age: 41 Year
  Sex: Female

DRUGS (8)
  1. PREDNISONE TAB [Suspect]
     Indication: CROHN'S DISEASE
     Route: 048
     Dates: end: 20010101
  2. PREDNISONE TAB [Suspect]
     Dosage: 25 MG/DAY
     Dates: start: 20040101
  3. METHOTREXATE [Suspect]
     Indication: CROHN'S DISEASE
     Dates: start: 20040101
  4. AZATHIOPRINE [Suspect]
     Indication: CROHN'S DISEASE
     Dates: start: 20010101
  5. INFLIXIMAB [Suspect]
     Indication: CROHN'S DISEASE
     Dates: start: 20010101, end: 20041101
  6. CIPROFLOXACIN HCL [Suspect]
     Indication: CROHN'S DISEASE
     Dates: start: 20040101
  7. METRONIDAZOLE [Suspect]
     Indication: CROHN'S DISEASE
     Dates: start: 20040101
  8. LAMIVUDINE [Concomitant]
     Indication: HEPATITIS B
     Dates: start: 20041201, end: 20051001

REACTIONS (4)
  - DRUG INTOLERANCE [None]
  - HEPATITIS B [None]
  - THERAPEUTIC RESPONSE UNEXPECTED [None]
  - TRANSAMINASES INCREASED [None]
